FAERS Safety Report 22208926 (Version 3)
Quarter: 2023Q4

REPORT INFORMATION
  Report Type: Spontaneous
  Country: US (occurrence: US)
  Receive Date: 20230413
  Receipt Date: 20231130
  Transmission Date: 20240110
  Serious: No
  Sender: FDA-Public Use
  Company Number: US-PFIZER INC-PV202300066435

PATIENT
  Age: 71 Year
  Sex: Female

DRUGS (1)
  1. LORBRENA [Suspect]
     Active Substance: LORLATINIB
     Indication: Lung adenocarcinoma
     Dosage: 25 MG, 3X/DAY
     Route: 048

REACTIONS (3)
  - Product dose omission issue [Unknown]
  - Stress [Unknown]
  - Product supply issue [Unknown]
